FAERS Safety Report 11756576 (Version 5)
Quarter: 2016Q1

REPORT INFORMATION
  Report Type: Spontaneous
  Country: JP (occurrence: JP)
  Receive Date: 20151119
  Receipt Date: 20160303
  Transmission Date: 20160525
  Serious: Yes (Death, Life-Threatening, Hospitalization, Other)
  Sender: FDA-Public Use
  Company Number: JP-009507513-1511JPN007760

PATIENT
  Age: 88 Year
  Sex: Female
  Weight: 26 kg

DRUGS (10)
  1. CUBICIN [Suspect]
     Active Substance: DAPTOMYCIN
     Dosage: 200 MG, QOD
     Route: 041
     Dates: start: 20151030, end: 20151031
  2. ISCOTIN [Concomitant]
     Active Substance: ISONIAZID
     Indication: TUBERCULOSIS
     Dosage: 150 MG, QD
     Route: 041
     Dates: start: 20150601, end: 20151031
  3. VANCOMYCIN HYDROCHLORIDE. [Concomitant]
     Active Substance: VANCOMYCIN HYDROCHLORIDE
     Indication: ENDOCARDITIS
  4. CUBICIN [Suspect]
     Active Substance: DAPTOMYCIN
     Indication: ENDOCARDITIS STAPHYLOCOCCAL
     Dosage: 200 MG, QD
     Route: 041
     Dates: start: 20151022, end: 20151029
  5. VANCOMYCIN HYDROCHLORIDE. [Concomitant]
     Active Substance: VANCOMYCIN HYDROCHLORIDE
     Indication: DEVICE RELATED INFECTION
     Dosage: 0.4 G, BID
     Route: 041
     Dates: start: 20151009, end: 20151021
  6. CRAVIT [Concomitant]
     Active Substance: LEVOFLOXACIN
     Indication: TUBERCULOSIS
     Dosage: 250 MG, QD
     Route: 041
     Dates: start: 20150601, end: 20151031
  7. HEPARIN SODIUM. [Concomitant]
     Active Substance: HEPARIN SODIUM
     Indication: ATRIAL FIBRILLATION
     Dosage: 9000 THOUSAND MILLION UNIT (DIVIDED DOSE FREQUENCY UNKNOWN)
     Route: 041
     Dates: start: 20150601, end: 20151031
  8. LASIX [Concomitant]
     Active Substance: FUROSEMIDE
     Indication: CARDIAC FAILURE
     Dosage: 20 MG, QD
     Route: 042
     Dates: start: 20150710, end: 20151031
  9. SOLDACTONE [Concomitant]
     Active Substance: CANRENOATE POTASSIUM
     Indication: CARDIAC FAILURE
     Dosage: 200 MG, QD
     Route: 042
     Dates: start: 20150710, end: 20151031
  10. DOBUTREX [Concomitant]
     Active Substance: DOBUTAMINE HYDROCHLORIDE
     Indication: CARDIAC FAILURE
     Dosage: DAILY DOSE UNKNOWN, 20 Y
     Route: 042
     Dates: start: 20150925, end: 20151031

REACTIONS (5)
  - Endocarditis staphylococcal [Fatal]
  - Overdose [Unknown]
  - Renal impairment [Unknown]
  - Cardiac failure [Fatal]
  - Seizure [Recovering/Resolving]

NARRATIVE: CASE EVENT DATE: 20151022
